FAERS Safety Report 9811266 (Version 1)
Quarter: 2014Q1

REPORT INFORMATION
  Report Type: Spontaneous
  Country: US (occurrence: US)
  Receive Date: 20140110
  Receipt Date: 20140110
  Transmission Date: 20141002
  Serious: Yes (Hospitalization)
  Sender: FDA-Public Use
  Company Number: US-SANOFI-AVENTIS-2013SA036368

PATIENT
  Age: 76 Year
  Sex: Female
  Weight: 45.26 kg

DRUGS (13)
  1. PLAVIX [Suspect]
     Indication: ANTICOAGULANT THERAPY
     Dates: start: 201211
  2. ENTERIC ASPIRIN [Suspect]
     Dates: start: 2007
  3. INVESTIGATIONAL DRUG [Suspect]
     Indication: PANCREATIC CARCINOMA METASTATIC
     Route: 042
     Dates: start: 20121210
  4. MEGACE [Concomitant]
     Dates: start: 201206
  5. CREON [Concomitant]
     Dates: start: 2001
  6. LISINOPRIL [Concomitant]
     Dates: start: 2004
  7. METOPROLOL TARTRATE [Concomitant]
     Dates: start: 201206
  8. FENTANYL [Concomitant]
     Dates: start: 20120712
  9. HUMALOG [Concomitant]
     Dates: start: 2006
  10. LANTUS [Concomitant]
     Route: 051
     Dates: start: 200606
  11. PREVACID [Concomitant]
     Dates: start: 2001
  12. URSODIOL [Concomitant]
     Dates: start: 2011
  13. WELCHOL [Concomitant]
     Dates: start: 2009

REACTIONS (1)
  - Gastrointestinal haemorrhage [Recovered/Resolved with Sequelae]
